FAERS Safety Report 4975013-1 (Version None)
Quarter: 2006Q2

REPORT INFORMATION
  Report Type: 
  Country: None (occurrence: None)
  Receive Date: 20060418
  Receipt Date: 20060408
  Transmission Date: 20061013
  Serious: Yes (Hospitalization)
  Sender: FDA-Public Use
  Company Number: US-JNJFOC-20060403093

PATIENT
  Sex: Female
  Weight: 81.65 kg

DRUGS (10)
  1. TYLENOL (CAPLET) [Suspect]
     Route: 048
  2. TYLENOL (CAPLET) [Suspect]
     Indication: ARTHRITIS
     Route: 048
  3. ASPIRIN [Suspect]
     Indication: DRUG USE FOR UNKNOWN INDICATION
     Route: 048
  4. PREVACID [Concomitant]
  5. COUMADIN [Concomitant]
     Indication: ANTICOAGULANT THERAPY
     Route: 048
  6. LITHIUM [Concomitant]
  7. SURMONTIL [Concomitant]
  8. CALCIUM WITH VITAMIN D [Concomitant]
  9. CALCIUM WITH VITAMIN D [Concomitant]
  10. CALCIUM WITH VITAMIN D [Concomitant]

REACTIONS (1)
  - THROMBOSIS [None]
